FAERS Safety Report 9971206 (Version 1)
Quarter: 2014Q1

REPORT INFORMATION
  Report Type: Spontaneous
  Country: US (occurrence: None)
  Receive Date: 20140305
  Receipt Date: 20140305
  Transmission Date: 20141002
  Serious: No
  Sender: FDA-Public Use
  Company Number: None

PATIENT
  Age: 54 Year
  Sex: Female
  Weight: 88 kg

DRUGS (1)
  1. RITUXIMAB [Suspect]

REACTIONS (8)
  - Feeling hot [None]
  - Nausea [None]
  - Eye movement disorder [None]
  - Loss of consciousness [None]
  - Blood pressure decreased [None]
  - Pulse absent [None]
  - Device computer issue [None]
  - Visual impairment [None]
